FAERS Safety Report 8585247-5 (Version None)
Quarter: 2012Q3

REPORT INFORMATION
  Report Type: 
  Country: None (occurrence: None)
  Receive Date: 20120810
  Receipt Date: 20120808
  Transmission Date: 20120928
  Serious: Yes (Death)
  Sender: FDA-Public Use
  Company Number: PHEH2012US010373

PATIENT
  Sex: Female

DRUGS (2)
  1. ANTIARRHYTHMICS [Concomitant]
  2. TASIGNA [Suspect]
     Dosage: UNK
     Route: 048
     Dates: start: 20111201

REACTIONS (1)
  - COMPLETED SUICIDE [None]
